FAERS Safety Report 24960465 (Version 1)
Quarter: 2025Q1

REPORT INFORMATION
  Report Type: Spontaneous
  Country: IT (occurrence: IT)
  Receive Date: 20250212
  Receipt Date: 20250212
  Transmission Date: 20250409
  Serious: Yes (Other)
  Sender: GLAND PHARMA LTD
  Company Number: IT-GLANDPHARMA-IT-2025GLNLIT00191

PATIENT
  Age: 71 Year
  Sex: Female

DRUGS (3)
  1. DEXAMETHASONE SODIUM PHOSPHATE [Suspect]
     Active Substance: DEXAMETHASONE SODIUM PHOSPHATE
     Indication: POEMS syndrome
     Route: 065
  2. LENALIDOMIDE [Suspect]
     Active Substance: LENALIDOMIDE
     Indication: POEMS syndrome
     Route: 065
  3. DARATUMUMAB [Suspect]
     Active Substance: DARATUMUMAB
     Indication: POEMS syndrome
     Route: 065

REACTIONS (3)
  - Neutropenia [Unknown]
  - Haematotoxicity [Unknown]
  - Product use in unapproved indication [Unknown]
